FAERS Safety Report 4582854-1 (Version None)
Quarter: 2005Q1

REPORT INFORMATION
  Report Type: 
  Country: None (occurrence: None)
  Receive Date: 20050215
  Receipt Date: 20050208
  Transmission Date: 20050727
  Serious: Yes (Other)
  Sender: FDA-Public Use
  Company Number: JP-ROCHE-394959

PATIENT
  Age: 64 Year
  Sex: Male

DRUGS (1)
  1. ROCEPHIN [Suspect]
     Indication: ENTEROCOLITIS
     Route: 042
     Dates: start: 20050204, end: 20050204

REACTIONS (2)
  - ADVERSE EVENT [None]
  - SHOCK [None]
